FAERS Safety Report 6135826-X (Version None)
Quarter: 2009Q1

REPORT INFORMATION
  Report Type: 
  Country: None (occurrence: None)
  Receive Date: 20090327
  Receipt Date: 20090320
  Transmission Date: 20090719
  Serious: Yes (Other)
  Sender: FDA-Public Use
  Company Number: US-BAXTER-2009BH004584

PATIENT

DRUGS (3)
  1. IGIV, UNSPECIFIED PRODUCT [Suspect]
     Indication: PRIMARY IMMUNODEFICIENCY SYNDROME
     Route: 042
  2. ACETAMINOPHEN [Concomitant]
     Indication: PREMEDICATION
     Route: 048
  3. DIPHENHYDRAMINE [Concomitant]
     Indication: PREMEDICATION
     Route: 048

REACTIONS (1)
  - ANAPHYLACTOID REACTION [None]
